FAERS Safety Report 19350532 (Version 1)
Quarter: 2021Q2

REPORT INFORMATION
  Report Type: Spontaneous
  Country: US (occurrence: US)
  Receive Date: 20210601
  Receipt Date: 20210601
  Transmission Date: 20210717
  Serious: Yes (Hospitalization)
  Sender: FDA-Public Use
  Company Number: None

PATIENT
  Age: 73 Year
  Sex: Female

DRUGS (3)
  1. LETAIRIS [Suspect]
     Active Substance: AMBRISENTAN
     Indication: PULMONARY ARTERIAL HYPERTENSION
     Route: 048
  2. DILTIAZEM ER [Concomitant]
     Active Substance: DILTIAZEM
  3. ALYQ [Concomitant]
     Active Substance: TADALAFIL

REACTIONS (3)
  - Fluid retention [None]
  - Lung disorder [None]
  - Cardiac disorder [None]

NARRATIVE: CASE EVENT DATE: 20210601
